FAERS Safety Report 5284396-7 (Version None)
Quarter: 2007Q1

REPORT INFORMATION
  Report Type: 
  Country: None (occurrence: None)
  Receive Date: 20070330
  Receipt Date: 20070330
  Transmission Date: 20070707
  Serious: Yes (Other)
  Sender: FDA-Public Use
  Company Number: None

PATIENT
  Age: 11 Year
  Sex: Male
  Weight: 34.4734 kg

DRUGS (1)
  1. MAXALT [Suspect]
     Dosage: 10 MG  PO
     Route: 048
     Dates: start: 20070324

REACTIONS (2)
  - FACIAL PAIN [None]
  - SWELLING FACE [None]
